FAERS Safety Report 10964394 (Version 1)
Quarter: 2015Q1

REPORT INFORMATION
  Report Type: Spontaneous
  Country: JP (occurrence: JP)
  Receive Date: 20150329
  Receipt Date: 20150329
  Transmission Date: 20150721
  Serious: Yes (Life-Threatening, Hospitalization)
  Sender: FDA-Public Use
  Company Number: JP-TEVA-550693ISR

PATIENT
  Age: 80 Year
  Sex: Female

DRUGS (7)
  1. PILSICAINIDE [Suspect]
     Active Substance: PILSICAINIDE
     Indication: ATRIAL FIBRILLATION
     Route: 065
  2. AZELNIDIPINE [Concomitant]
     Active Substance: AZELNIDIPINE
     Route: 065
  3. DISOPYRAMIDE [Suspect]
     Active Substance: DISOPYRAMIDE
     Indication: ATRIAL FIBRILLATION
     Route: 065
  4. BETAXOLOL [Suspect]
     Active Substance: BETAXOLOL
     Indication: HYPERTENSION
  5. DISOPYRAMIDE [Suspect]
     Active Substance: DISOPYRAMIDE
     Indication: HYPERTENSION
  6. BETAXOLOL [Suspect]
     Active Substance: BETAXOLOL
     Indication: ATRIAL FIBRILLATION
     Route: 065
  7. PILSICAINIDE [Suspect]
     Active Substance: PILSICAINIDE
     Indication: HYPERTENSION

REACTIONS (2)
  - Sinus bradycardia [Recovered/Resolved]
  - Cardiogenic shock [Recovered/Resolved]
